FAERS Safety Report 6727678-1 (Version None)
Quarter: 2010Q2

REPORT INFORMATION
  Report Type: 
  Country: None (occurrence: None)
  Receive Date: 20100512
  Receipt Date: 20100504
  Transmission Date: 20101027
  Serious: Yes (Hospitalization, Other)
  Sender: FDA-Public Use
  Company Number: JHP201000154

PATIENT
  Age: 39 Year
  Sex: Female
  Weight: 76.7 kg

DRUGS (7)
  1. EPINEPHRINE [Suspect]
     Indication: MESOTHERAPY
     Dosage: ONCE/DAY INTO THE SUBCUTANEOUS FAT OF THE LOWER ABDOMEN, SUBCUTANEOUS
  2. AMINOPHYLLIN [Suspect]
     Indication: MESOTHERAPY
     Dosage: ONCE/DAY INTO THE SUBCUTANEOUS FAT OF THE LOWER ABDOMEN, SUBCUTANEOUS
     Route: 058
  3. FLUOXETINE HCL [Suspect]
     Indication: OBESITY
     Dosage: 10 MG, BID, ORAL
     Route: 048
  4. EPHEDRINE (EPHEDRINE HYDROCHLORIDE) [Suspect]
     Indication: OBESITY
     Dosage: 10 MG, BID, ORAL
     Route: 048
  5. CAFFEINE CITRATE [Suspect]
     Indication: OBESITY
     Dosage: 50 MG, BID, ORAL
     Route: 048
  6. GREEN TEA () POWDER (EXCEPT [DPO]) [Suspect]
     Indication: OBESITY
     Dosage: 250 MG, BID, ORAL
     Route: 048
  7. LIDOCAINE [Concomitant]

REACTIONS (2)
  - COLITIS ISCHAEMIC [None]
  - LEUKOCYTOSIS [None]
